FAERS Safety Report 7146297-9 (Version None)
Quarter: 2010Q4

REPORT INFORMATION
  Report Type: 
  Country: None (occurrence: None)
  Receive Date: 20101208
  Receipt Date: 20101122
  Transmission Date: 20110411
  Serious: No
  Sender: FDA-Public Use
  Company Number: US-B.I. PHARMACEUTICALS,INC./RIDGEFIELD-2010-BP-13204BP

PATIENT
  Sex: Male

DRUGS (9)
  1. PRADAXA [Suspect]
     Indication: ATRIAL FIBRILLATION
     Route: 048
     Dates: start: 20101101
  2. FLOMAX [Concomitant]
     Dosage: 0.4 MG
     Route: 048
  3. MAXZIDE [Concomitant]
     Indication: HYPERTENSION
     Route: 048
  4. IMODIUM A-D [Concomitant]
     Dosage: 2 MG
     Route: 048
  5. ALLOPURINOL [Concomitant]
     Dosage: 300 MG
     Route: 048
  6. AGRYLIN [Concomitant]
     Dosage: 0.5 MG
     Route: 048
  7. LEVOTHROID [Concomitant]
     Dosage: 100 MG
     Route: 048
  8. MULTAQ [Concomitant]
     Dosage: 400 MG
     Route: 048
  9. LISINOPRIL [Concomitant]
     Indication: HYPERTENSION
     Dosage: 40 MG
     Route: 048

REACTIONS (1)
  - FATIGUE [None]
